FAERS Safety Report 9261226 (Version 2)
Quarter: 2013Q2

REPORT INFORMATION
  Report Type: Report from Study
  Country: US (occurrence: US)
  Receive Date: 20130429
  Receipt Date: 20130508
  Transmission Date: 20140414
  Serious: Yes (Hospitalization, Other)
  Sender: FDA-Public Use
  Company Number: PHEH2013US008747

PATIENT
  Age: 26 Year
  Sex: Female
  Weight: 49.43 kg

DRUGS (3)
  1. GILENYA [Suspect]
     Indication: MULTIPLE SCLEROSIS
     Dosage: 0.5 MG, QD
     Route: 048
     Dates: start: 20130410, end: 20130414
  2. TRAMADOL [Concomitant]
     Indication: PAIN
     Dosage: 50 MG, Q 6 PRN
     Route: 048
  3. ZANTAC [Concomitant]
     Indication: DYSPEPSIA
     Dosage: UNK, QD
     Route: 048

REACTIONS (8)
  - Panic attack [Recovering/Resolving]
  - Hyperventilation [Recovering/Resolving]
  - Palpitations [Not Recovered/Not Resolved]
  - Loss of consciousness [Recovering/Resolving]
  - Chest pain [Recovering/Resolving]
  - Sinus bradycardia [Recovering/Resolving]
  - Blood potassium decreased [Unknown]
  - Lymphocyte percentage decreased [Unknown]
